FAERS Safety Report 14319910 (Version 6)
Quarter: 2018Q1

REPORT INFORMATION
  Report Type: Spontaneous
  Country: US (occurrence: US)
  Receive Date: 20171222
  Receipt Date: 20180124
  Transmission Date: 20180509
  Serious: Yes (Life-Threatening, Hospitalization, Other)
  Sender: FDA-Public Use
  Company Number: PHEH2017US040659

PATIENT
  Age: 28 Year
  Sex: Female
  Weight: 100 kg

DRUGS (6)
  1. CLOPIDOGREL [Suspect]
     Active Substance: CLOPIDOGREL BISULFATE
     Indication: MOYAMOYA DISEASE
     Dosage: UNK
     Route: 048
     Dates: start: 20171120
  2. ATORVASTATIN CALCIUM. [Suspect]
     Active Substance: ATORVASTATIN CALCIUM
     Indication: MOYAMOYA DISEASE
     Dosage: UNK
     Route: 048
     Dates: start: 20171120
  3. NEXPLANON [Suspect]
     Active Substance: ETONOGESTREL
     Indication: CONTRACEPTION
     Dosage: 68 MG, UNK
     Route: 065
     Dates: start: 20170130
  4. COSENTYX [Suspect]
     Active Substance: SECUKINUMAB
     Indication: PSORIASIS
     Dosage: 300 MG, QMO
     Route: 058
     Dates: start: 20170420
  5. ASPIRIN. [Suspect]
     Active Substance: ASPIRIN
     Indication: MOYAMOYA DISEASE
     Dosage: UNK UNK, QD
     Route: 065
     Dates: start: 20171120
  6. MIDODRINE HYDROCHLORIDE TABLETS [Suspect]
     Active Substance: MIDODRINE HYDROCHLORIDE
     Indication: MOYAMOYA DISEASE
     Route: 065

REACTIONS (6)
  - Psoriasis [Unknown]
  - Inappropriate schedule of drug administration [Unknown]
  - Drug ineffective [Unknown]
  - Transient ischaemic attack [Recovered/Resolved with Sequelae]
  - Moyamoya disease [Recovered/Resolved with Sequelae]
  - Stress [Unknown]

NARRATIVE: CASE EVENT DATE: 20171119
